FAERS Safety Report 26204922 (Version 1)
Quarter: 2025Q4

REPORT INFORMATION
  Report Type: Spontaneous
  Country: US (occurrence: US)
  Receive Date: 20251227
  Receipt Date: 20251227
  Transmission Date: 20260117
  Serious: No
  Sender: SANOFI AVENTIS
  Company Number: US-SANOFI-02761796

PATIENT
  Age: 91 Year
  Sex: Female

DRUGS (5)
  1. DUPIXENT [Suspect]
     Active Substance: DUPILUMAB
     Indication: Staphylococcal infection
     Dosage: UNK
     Dates: start: 20251218, end: 20251218
  2. TRACEVAL [Concomitant]
  3. INSULIN NOS [Concomitant]
     Active Substance: INSULIN NOS
  4. METOPROLOL [Concomitant]
     Active Substance: METOPROLOL
  5. LISINOPRIL [Concomitant]
     Active Substance: LISINOPRIL

REACTIONS (2)
  - Therapeutic response unexpected [Unknown]
  - Off label use [Unknown]
